FAERS Safety Report 9911165 (Version 1)
Quarter: 2014Q1

REPORT INFORMATION
  Report Type: Spontaneous
  Country: FR (occurrence: FR)
  Receive Date: 20140219
  Receipt Date: 20140219
  Transmission Date: 20141002
  Serious: Yes (Hospitalization)
  Sender: FDA-Public Use
  Company Number: FR-BAXTER-2014BAX007779

PATIENT
  Age: 39 Year
  Sex: Female

DRUGS (4)
  1. ENDOXAN 50 MG, COMPRIM? ENROB? [Suspect]
     Indication: SYSTEMIC LUPUS ERYTHEMATOSUS
     Route: 048
     Dates: start: 201305, end: 20130602
  2. BACTRIM [Suspect]
     Indication: ANTIFUNGAL PROPHYLAXIS
     Route: 048
     Dates: start: 20130529, end: 20130602
  3. CORTANCYL [Concomitant]
     Indication: EVIDENCE BASED TREATMENT
  4. LEVOCARNITINE [Concomitant]
     Indication: EVIDENCE BASED TREATMENT
     Route: 065

REACTIONS (1)
  - Drug reaction with eosinophilia and systemic symptoms [Recovered/Resolved]
